FAERS Safety Report 17974340 (Version 8)
Quarter: 2022Q2

REPORT INFORMATION
  Report Type: Spontaneous
  Country: US (occurrence: US)
  Receive Date: 20200702
  Receipt Date: 20220611
  Transmission Date: 20220720
  Serious: Yes (Other)
  Sender: FDA-Public Use
  Company Number: US-TEVA-2020-US-1793597

PATIENT
  Age: 64 Year
  Sex: Female

DRUGS (2)
  1. QVAR REDIHALER [Suspect]
     Active Substance: BECLOMETHASONE DIPROPIONATE
     Indication: Respiration abnormal
     Dosage: 2 PUFFS TWICE DAILY/HAS BEEN ON THE QVAR REDIHALER FOR YEARS
     Route: 055
  2. ALBUTEROL [Concomitant]
     Active Substance: ALBUTEROL
     Indication: Respiration abnormal
     Route: 065

REACTIONS (13)
  - Craniocerebral injury [Unknown]
  - Accident [Unknown]
  - Face crushing [Unknown]
  - Vitreous detachment [Unknown]
  - Malaise [Unknown]
  - Dyspnoea [Unknown]
  - Fatigue [Unknown]
  - Chest pain [Unknown]
  - Lung disorder [Unknown]
  - Memory impairment [Unknown]
  - Product dose omission in error [Unknown]
  - Insomnia [Unknown]
  - Malnutrition [Unknown]

NARRATIVE: CASE EVENT DATE: 20190101
